FAERS Safety Report 5685240-6 (Version None)
Quarter: 2008Q1

REPORT INFORMATION
  Report Type: 
  Country: None (occurrence: None)
  Receive Date: 20080328
  Receipt Date: 20080316
  Transmission Date: 20080703
  Serious: Yes (Other)
  Sender: FDA-Public Use
  Company Number: US-PFIZER INC-2008005083

PATIENT
  Sex: Female
  Weight: 89.8 kg

DRUGS (41)
  1. CHANTIX [Suspect]
     Indication: SMOKING CESSATION THERAPY
     Route: 048
  2. TOLTERODINE TARTRATE [Concomitant]
  3. DIPYRIDAMOLE [Concomitant]
  4. SERTRALINE [Concomitant]
  5. ABILIFY [Concomitant]
  6. EZETIMIBE [Concomitant]
  7. EZETIMIBE [Concomitant]
  8. FENOFIBRATE [Concomitant]
  9. FENOFIBRATE [Concomitant]
  10. OMEGA-3 TRIGLYCERIDES [Concomitant]
  11. OMEGA-3 TRIGLYCERIDES [Concomitant]
  12. ROSUVASTATIN [Concomitant]
  13. ROSUVASTATIN [Concomitant]
  14. LISINOPRIL [Concomitant]
  15. LISINOPRIL [Concomitant]
  16. DOCUSATE [Concomitant]
  17. DOCUSATE [Concomitant]
  18. PANTOPRAZOLE SODIUM [Concomitant]
  19. PANTOPRAZOLE SODIUM [Concomitant]
  20. NPH INSULIN [Concomitant]
  21. NPH INSULIN [Concomitant]
  22. LEVOTHYROXINE SODIUM [Concomitant]
  23. LEVOTHYROXINE SODIUM [Concomitant]
  24. DRUG, UNSPECIFIED [Concomitant]
  25. DRUG, UNSPECIFIED [Concomitant]
  26. VITAMINS [Concomitant]
  27. VITAMINS [Concomitant]
  28. FERROUS SULFATE TAB [Concomitant]
  29. FERROUS SULFATE TAB [Concomitant]
  30. MAGNESIUM OXIDE [Concomitant]
  31. MAGNESIUM OXIDE [Concomitant]
  32. CYANOCOBALAMIN [Concomitant]
  33. CYANOCOBALAMIN [Concomitant]
  34. FOLIC ACID [Concomitant]
  35. CALCIUM [Concomitant]
  36. HYDROCODONE BITARTRATE [Concomitant]
  37. LORAZEPAM [Concomitant]
  38. METOCLOPRAMIDE [Concomitant]
  39. GABAPENTIN [Concomitant]
  40. NITROGLYCERIN [Concomitant]
  41. NOVOLIN 70/30 [Concomitant]

REACTIONS (1)
  - BLOOD GLUCOSE INCREASED [None]
